FAERS Safety Report 20430779 (Version 1)
Quarter: 2022Q1

REPORT INFORMATION
  Report Type: Report from Study
  Country: FR (occurrence: FR)
  Receive Date: 20220204
  Receipt Date: 20220204
  Transmission Date: 20220423
  Serious: Yes (Other)
  Sender: FDA-Public Use
  Company Number: FR-SERVIER-S20012396

PATIENT

DRUGS (6)
  1. PEGASPARGASE [Suspect]
     Active Substance: PEGASPARGASE
     Indication: Acute lymphocytic leukaemia
     Dosage: 1050 IU, DAILY, ON D8 AND D36
     Route: 042
     Dates: start: 20190812, end: 20190909
  2. TN UNSPECIFIED [Concomitant]
     Indication: Acute lymphocytic leukaemia
     Dosage: 1.2 MG, D1, D8, D29, AND D36
     Route: 042
     Dates: start: 20190805, end: 20190909
  3. TN UNSPECIFIED [Concomitant]
     Indication: Acute lymphocytic leukaemia
     Dosage: 4.7 MG, D1-D5 AND D29-D33
     Route: 048
     Dates: start: 20190805, end: 20190906
  4. TN UNSPECIFIED [Concomitant]
     Indication: Acute lymphocytic leukaemia
     Dosage: 12 MG, D2 AND D30
     Route: 037
     Dates: start: 20190806, end: 20190903
  5. TN UNSPECIFIED [Concomitant]
     Dosage: 20 MG, D8, D15, D22, AND D36
     Route: 048
     Dates: start: 20190812, end: 20190909
  6. TN UNSPECIFIED [Concomitant]
     Indication: Acute lymphocytic leukaemia
     Dosage: 40 MG, D1-D21 AND D29-D40
     Route: 048
     Dates: start: 20190805

REACTIONS (3)
  - Hyperbilirubinaemia [Recovered/Resolved]
  - Neisseria infection [Unknown]
  - Hepatic steatosis [Unknown]

NARRATIVE: CASE EVENT DATE: 20190822
